FAERS Safety Report 9162559 (Version 1)
Quarter: 2013Q1

REPORT INFORMATION
  Report Type: Spontaneous
  Country: US (occurrence: None)
  Receive Date: 20130221
  Receipt Date: 20130221
  Transmission Date: 20140127
  Serious: Yes (Hospitalization)
  Sender: FDA-Public Use
  Company Number: SYM-2013-00568

PATIENT
  Age: 79 Year
  Sex: Female

DRUGS (12)
  1. FLUOROURACIL [Suspect]
     Indication: COLON CANCER
     Dosage: (NOT OTHERWISE SPECIFIED)?
     Route: 042
     Dates: start: 20120918, end: 20130108
  2. OXALIPLATIN [Suspect]
     Indication: COLON CANCER
     Dosage: INTRAVENOUS (OTHERWISE NOT SPECIFIED)??
     Route: 042
     Dates: start: 20120918, end: 20130108
  3. UNSPECIFIED INGREDIENT [Suspect]
     Indication: COLON CANCER
     Dosage: INTRAVENOUS (OTHERWISE NOT SPECIFIED)
     Route: 042
     Dates: start: 20120918, end: 20130108
  4. BEVACIZUMAB [Suspect]
     Indication: COLON CANCER
     Dosage: INTRAVENOUS (OTHERWISE NOT SPECIFIED)
  5. CALCIUM FOLINATE [Suspect]
     Indication: COLON CANCER
     Dosage: INTRAVENOUS (OTHERWISE NOT SPECIFIED)
     Route: 042
     Dates: start: 20120918, end: 20130108
  6. ESCITALOPRAM (ESCITALOPRAM) (UNKNOWN) (ESCITALOPRAM) [Concomitant]
  7. ALPRAZOLAM (ALPRAZOLAM) (UNKNOWN) (ALPRAZOLAM) [Concomitant]
  8. FEXOFENADINE (FEXOFENADINE) (UNKNOWN) (FEXOFENADINE) [Concomitant]
  9. ESOMEPRAZOLE (ESOMEPRAZOLE) (UNKNOWN) (ESOMEPRAZOLE) [Concomitant]
  10. CHOLECALCIFEROL (COLECALCIFEROL) (UNKNOWN) (COLECALCIFEROL) [Concomitant]
  11. ASCORBIC ACID (ASCORBIC ACID) (UNKNOWN) (ASCORBIC ACID) [Concomitant]
  12. MULTIVITAMINS WITH IRON (FERROUS SULFATE W/VITAMINS NOS) (UNKNOWN) (FERROUS SULFATE, VITAMINS NOS) [Concomitant]

REACTIONS (7)
  - Syncope [None]
  - Encephalopathy [None]
  - Myocardial infarction [None]
  - Urinary tract infection [None]
  - Cerebrovascular accident [None]
  - Confusional state [None]
  - Agitation [None]
